FAERS Safety Report 7927380-4 (Version None)
Quarter: 2011Q4

REPORT INFORMATION
  Report Type: 
  Country: None (occurrence: None)
  Receive Date: 20111118
  Receipt Date: 20111108
  Transmission Date: 20120403
  Serious: Yes (Hospitalization)
  Sender: FDA-Public Use
  Company Number: US-BAYER-201021852NA

PATIENT
  Age: 32 Year
  Sex: Female
  Weight: 80 kg

DRUGS (13)
  1. ATENOLOL [Concomitant]
     Dosage: 50 MG, QD
     Route: 048
     Dates: start: 20060608
  2. PREVACID [Concomitant]
     Indication: GASTRITIS
     Dosage: 30 MG, QD
     Route: 048
     Dates: start: 20060608
  3. VICOPROFEN [Concomitant]
  4. NORVASC [Concomitant]
  5. TRIAMTERENE [Concomitant]
  6. CIPROFLOXACIN [Concomitant]
  7. M.V.I. [Concomitant]
  8. ACEBUTOLOL [Concomitant]
  9. IBUPROF [Concomitant]
  10. ACETAMINOPHEN [Concomitant]
     Dosage: UNK UNK, PRN
  11. NADOLOL [Concomitant]
  12. YAZ [Suspect]
     Dosage: UNK UNK, QD
     Route: 048
     Dates: start: 20060510, end: 20060627
  13. YASMIN [Suspect]

REACTIONS (3)
  - PORTAL VEIN THROMBOSIS [None]
  - SPLENIC VEIN THROMBOSIS [None]
  - MESENTERIC VEIN THROMBOSIS [None]
